FAERS Safety Report 12542557 (Version 1)
Quarter: 2016Q3

REPORT INFORMATION
  Report Type: Spontaneous
  Country: GB (occurrence: GB)
  Receive Date: 20160709
  Receipt Date: 20160709
  Transmission Date: 20161109
  Serious: Yes (Death)
  Sender: FDA-Public Use
  Company Number: GB-CIPLA LTD.-2016GB08962

PATIENT

DRUGS (6)
  1. CARBOPLATIN. [Suspect]
     Active Substance: CARBOPLATIN
     Indication: SMALL CELL LUNG CANCER EXTENSIVE STAGE
     Dosage: AUC OF 5, ON DAY 1
     Route: 042
  2. VINCRISTINE [Suspect]
     Active Substance: VINCRISTINE
     Indication: SMALL CELL LUNG CANCER EXTENSIVE STAGE
     Dosage: UNK
     Route: 065
  3. IRINOTECAN [Suspect]
     Active Substance: IRINOTECAN
     Indication: SMALL CELL LUNG CANCER EXTENSIVE STAGE
     Dosage: 50 MG/M2, ON DAYS 1 AND 8
     Route: 042
  4. CYCLOPHOSPHAMIDE. [Suspect]
     Active Substance: CYCLOPHOSPHAMIDE
     Indication: SMALL CELL LUNG CANCER EXTENSIVE STAGE
     Dosage: UNK
     Route: 065
  5. DOXORUBICIN [Suspect]
     Active Substance: DOXORUBICIN
     Indication: SMALL CELL LUNG CANCER EXTENSIVE STAGE
     Dosage: UNK
     Route: 065
  6. ATROPINE. [Concomitant]
     Active Substance: ATROPINE
     Indication: PROPHYLAXIS
     Dosage: UNK
     Route: 065

REACTIONS (1)
  - Death [Fatal]
